FAERS Safety Report 21089736 (Version 1)
Quarter: 2022Q3

REPORT INFORMATION
  Report Type: Spontaneous
  Country: US (occurrence: None)
  Receive Date: 20220715
  Receipt Date: 20220715
  Transmission Date: 20221026
  Serious: No
  Sender: FDA-Public Use
  Company Number: None

PATIENT
  Age: 47 Year
  Sex: Female
  Weight: 121.5 kg

DRUGS (18)
  1. PAXLOVID [Suspect]
     Active Substance: NIRMATRELVIR\RITONAVIR
     Indication: COVID-19
  2. LEVOTHYROXINE [Concomitant]
     Active Substance: LEVOTHYROXINE
  3. ALBUTEROL [Concomitant]
     Active Substance: ALBUTEROL
  4. BREO ELLIPTA [Concomitant]
  5. ATORVASTATIN [Concomitant]
     Active Substance: ATORVASTATIN
  6. nortryptiline [Concomitant]
  7. ATENOLOL [Concomitant]
     Active Substance: ATENOLOL
  8. ZOFRAN [Concomitant]
     Active Substance: ONDANSETRON HYDROCHLORIDE
  9. PREDNISONE [Concomitant]
     Active Substance: PREDNISONE
  10. Symponie IV infusion [Concomitant]
  11. MORPHINE [Concomitant]
     Active Substance: MORPHINE
  12. HYDROCODONE/APAP [Concomitant]
  13. PREGABALIN [Concomitant]
     Active Substance: PREGABALIN
  14. BUPROPION [Concomitant]
     Active Substance: BUPROPION
  15. BACLOFEN [Concomitant]
     Active Substance: BACLOFEN
  16. VITAMIN D [Concomitant]
     Active Substance: VITAMIN D NOS
  17. MAGNESIUM [Concomitant]
     Active Substance: MAGNESIUM
  18. CANNABIDIOL [Concomitant]
     Active Substance: CANNABIDIOL

REACTIONS (3)
  - Dysgeusia [None]
  - Dysgeusia [None]
  - Nausea [None]

NARRATIVE: CASE EVENT DATE: 20220712
